FAERS Safety Report 20225051 (Version 1)
Quarter: 2021Q4

REPORT INFORMATION
  Report Type: Spontaneous
  Country: AT (occurrence: AT)
  Receive Date: 20211223
  Receipt Date: 20211223
  Transmission Date: 20220304
  Serious: Yes (Other)
  Sender: FDA-Public Use
  Company Number: None

PATIENT
  Age: 31 Year
  Sex: Female

DRUGS (8)
  1. CYCLOPHOSPHAMIDE [Suspect]
     Active Substance: CYCLOPHOSPHAMIDE
     Indication: Choriocarcinoma
     Dosage: 4 CYCLES
     Route: 065
     Dates: start: 20180814, end: 20180826
  2. ETOPOSIDE [Suspect]
     Active Substance: ETOPOSIDE
     Indication: Choriocarcinoma
     Dosage: 4 CYCLES
     Route: 065
     Dates: start: 20180814
  3. ETOPOSIDE [Suspect]
     Active Substance: ETOPOSIDE
     Route: 065
     Dates: start: 20181109
  4. VINCRISTINE [Suspect]
     Active Substance: VINCRISTINE
     Indication: Choriocarcinoma
     Dosage: 4 CYCLES
     Route: 065
     Dates: start: 20180814, end: 20180826
  5. METHOTREXATE [Suspect]
     Active Substance: METHOTREXATE
     Indication: Choriocarcinoma
     Dosage: 4 CYCLES
     Route: 065
     Dates: start: 20180814
  6. ACTINOMYCIN D [Suspect]
     Active Substance: DACTINOMYCIN
     Indication: Choriocarcinoma
     Dosage: 4 CYCLES
     Route: 065
     Dates: start: 20180814
  7. CISPLATIN [Concomitant]
     Active Substance: CISPLATIN
     Indication: Choriocarcinoma
     Route: 065
     Dates: start: 20181003
  8. PACLITAXEL [Concomitant]
     Active Substance: PACLITAXEL
     Indication: Choriocarcinoma
     Route: 065
     Dates: start: 201810

REACTIONS (2)
  - Drug ineffective [Unknown]
  - Drug resistance [Unknown]

NARRATIVE: CASE EVENT DATE: 20180101
